FAERS Safety Report 4334868-4 (Version None)
Quarter: 2004Q2

REPORT INFORMATION
  Report Type: 
  Country: None (occurrence: None)
  Receive Date: 20040408
  Receipt Date: 20040128
  Transmission Date: 20050107
  Serious: Yes (Other)
  Sender: FDA-Public Use
  Company Number: 200410377FR

PATIENT
  Age: 34 Year
  Sex: Female

DRUGS (4)
  1. KETEK [Suspect]
     Indication: BRONCHITIS
     Route: 048
     Dates: start: 20031126
  2. RHINUREFLEX [Concomitant]
     Dates: start: 20031126
  3. COUGH AND COLD PREPARATIONS [Concomitant]
     Dates: start: 20031126
  4. OTHER ANALGESICS AND ANTIPYRETICS [Concomitant]
     Dates: start: 20031126

REACTIONS (8)
  - MENTAL DISORDER [None]
  - MIGRAINE WITH AURA [None]
  - PHOTOPHOBIA [None]
  - PHOTOPSIA [None]
  - SCOTOMA [None]
  - VISION BLURRED [None]
  - VISUAL ACUITY REDUCED [None]
  - VISUAL DISTURBANCE [None]
